FAERS Safety Report 20365167 (Version 1)
Quarter: 2022Q1

REPORT INFORMATION
  Report Type: Spontaneous
  Country: DE (occurrence: DE)
  Receive Date: 20220122
  Receipt Date: 20220122
  Transmission Date: 20220424
  Serious: Yes (Hospitalization, Other)
  Sender: FDA-Public Use
  Company Number: DE-BIOGEN-2021BI01081885

PATIENT
  Age: 37 Year
  Sex: Female
  Weight: 90 kg

DRUGS (2)
  1. LAMOTRIGINE [Suspect]
     Active Substance: LAMOTRIGINE
     Indication: SUNCT syndrome
     Dosage: UNK
     Route: 065
     Dates: start: 20211115, end: 20211217
  2. PLEGRIDY [Suspect]
     Active Substance: PEGINTERFERON BETA-1A
     Indication: Multiple sclerosis
     Dosage: 125 MICROGRAM
     Route: 058
     Dates: start: 20181101

REACTIONS (2)
  - Stevens-Johnson syndrome [Recovered/Resolved]
  - SUNCT syndrome [Not Recovered/Not Resolved]

NARRATIVE: CASE EVENT DATE: 20210501
